FAERS Safety Report 7646883-3 (Version None)
Quarter: 2011Q3

REPORT INFORMATION
  Report Type: 
  Country: None (occurrence: None)
  Receive Date: 20110801
  Receipt Date: 20110720
  Transmission Date: 20111222
  Serious: Yes (Other)
  Sender: FDA-Public Use
  Company Number: US-ASTRAZENECA-2007UW27342

PATIENT
  Age: 38 Year
  Sex: Female
  Weight: 75.3 kg

DRUGS (18)
  1. PAROXETINE HCL [Concomitant]
     Route: 048
     Dates: start: 20071115
  2. SEROQUEL [Suspect]
     Indication: SCHIZOAFFECTIVE DISORDER
     Dosage: 25 MG, 100 MG, 200 MG, 300 MG, 600 MG, 800 MG
     Route: 048
     Dates: start: 20030910
  3. TOPAMAX [Concomitant]
     Dates: start: 20060101
  4. AMARYL [Concomitant]
     Route: 048
     Dates: start: 20050818
  5. FLAGYL [Concomitant]
     Route: 048
     Dates: start: 20050818
  6. SINGULAIR [Concomitant]
     Route: 048
     Dates: start: 20050818
  7. ZITHROMAX [Concomitant]
     Dates: start: 20060314
  8. SEROQUEL [Suspect]
     Indication: DEPRESSION
     Dosage: 25 MG, 100 MG, 200 MG, 300 MG, 600 MG, 800 MG
     Route: 048
     Dates: start: 20030910
  9. SEROQUEL [Suspect]
     Dosage: 25-300 MG
     Route: 048
     Dates: start: 20040126
  10. ALBUTEROL SULFATE AUTOHALER [Concomitant]
     Dosage: 90 MCG 2 PUFFS EVERY 4 HRS/ PRN
     Dates: start: 20040331
  11. EFFEXOR XR [Concomitant]
     Route: 048
     Dates: start: 20050818
  12. METHYLPREDNISOLONE [Concomitant]
     Dates: start: 20040126, end: 20040202
  13. SEROQUEL [Suspect]
     Dosage: 25-300 MG
     Route: 048
     Dates: start: 20040126
  14. TENORMIN [Concomitant]
     Route: 048
     Dates: start: 20050818
  15. DIOVAN [Concomitant]
     Route: 048
     Dates: start: 20050818
  16. PRAVACHOL [Concomitant]
     Route: 048
     Dates: start: 20050816
  17. OXCARBAZEPINE [Concomitant]
     Dates: start: 20040126
  18. ATIVAN [Concomitant]
     Dosage: 2 MG 10 AM
     Route: 048
     Dates: start: 20040127

REACTIONS (5)
  - MALIGNANT HYPERTENSION [None]
  - BLOOD CHOLESTEROL INCREASED [None]
  - PNEUMOTHORAX [None]
  - HYPERLIPIDAEMIA [None]
  - TYPE 2 DIABETES MELLITUS [None]
